FAERS Safety Report 5251820-5 (Version None)
Quarter: 2007Q1

REPORT INFORMATION
  Report Type: 
  Country: None (occurrence: None)
  Receive Date: 20070228
  Receipt Date: 20070223
  Transmission Date: 20070707
  Serious: Yes (Hospitalization)
  Sender: FDA-Public Use
  Company Number: JP-SP-2007-00553

PATIENT
  Age: 53 Year
  Sex: Female

DRUGS (2)
  1. IMMUCYST [Suspect]
     Indication: BLADDER CANCER
     Route: 043
     Dates: start: 20060919, end: 20060919
  2. DICLOFENAC SODIUM [Concomitant]
     Dates: start: 20060919, end: 20060919

REACTIONS (1)
  - URINARY BLADDER HAEMORRHAGE [None]
